FAERS Safety Report 25908882 (Version 1)
Quarter: 2025Q4

REPORT INFORMATION
  Report Type: Spontaneous
  Country: EU (occurrence: EU)
  Receive Date: 20251011
  Receipt Date: 20251011
  Transmission Date: 20260118
  Serious: Yes (Life-Threatening, Other)
  Sender: CELLTRION
  Company Number: None

PATIENT

DRUGS (7)
  1. RITUXIMAB [Suspect]
     Active Substance: RITUXIMAB
     Indication: Acute lymphocytic leukaemia
     Dosage: 1600 MILLIGRAM, TOTAL
     Route: 042
     Dates: start: 20250708, end: 20250715
  2. ASPARAGINASE [Suspect]
     Active Substance: ASPARAGINASE
     Indication: Acute lymphocytic leukaemia
     Dosage: 24600 INTERNATIONAL UNIT,  TOTAL
     Route: 042
     Dates: start: 20250715, end: 20250717
  3. METHYLPREDNISOLONE [Suspect]
     Active Substance: METHYLPREDNISOLONE
     Indication: Acute lymphocytic leukaemia
     Dosage: 40 MILLIGRAM, TOTAL
     Route: 037
     Dates: start: 20250715, end: 20250715
  4. METHOTREXATE [Suspect]
     Active Substance: METHOTREXATE
     Indication: Acute lymphocytic leukaemia
     Dosage: 15 MILLIGRAM, TOTAL
     Route: 037
     Dates: start: 20250715, end: 20250715
  5. CYTARABINE [Suspect]
     Active Substance: CYTARABINE
     Indication: Acute lymphocytic leukaemia
     Dosage: 40 MILLIGRAM, TOTAL
     Route: 037
     Dates: start: 20250715, end: 20250715
  6. PREDNISONE [Suspect]
     Active Substance: PREDNISONE
     Indication: Acute lymphocytic leukaemia
     Dosage: 120 MILLIGRAM, QD
     Route: 048
     Dates: start: 20250708, end: 20250714
  7. VINCRISTINE SULFATE [Suspect]
     Active Substance: VINCRISTINE SULFATE
     Indication: Acute lymphocytic leukaemia
     Dosage: 4 MILLIGRAM, TOTAL
     Route: 042
     Dates: start: 20250702, end: 20250715

REACTIONS (2)
  - Encephalopathy [Recovered/Resolved]
  - Intentional product use issue [Unknown]

NARRATIVE: CASE EVENT DATE: 20250717
